FAERS Safety Report 21330189 (Version 1)
Quarter: 2022Q3

REPORT INFORMATION
  Report Type: Spontaneous
  Country: US (occurrence: US)
  Receive Date: 20220913
  Receipt Date: 20220913
  Transmission Date: 20221026
  Serious: No
  Sender: FDA-Public Use
  Company Number: US-009507513-2209USA003218

PATIENT
  Age: 77 Year
  Sex: Male

DRUGS (3)
  1. VERQUVO [Suspect]
     Active Substance: VERICIGUAT
     Dosage: 2.5 MG
     Route: 048
  2. ENTRESTO [Suspect]
     Active Substance: SACUBITRIL\VALSARTAN
     Dosage: MEDIUM DOSE
  3. DIGOXIN [Suspect]
     Active Substance: DIGOXIN
     Dosage: LOW DOSE

REACTIONS (2)
  - Malaise [Unknown]
  - Hypotension [Unknown]
